FAERS Safety Report 23894023 (Version 1)
Quarter: 2024Q2

REPORT INFORMATION
  Report Type: Spontaneous
  Country: US (occurrence: None)
  Receive Date: 20240524
  Receipt Date: 20240524
  Transmission Date: 20240716
  Serious: No
  Sender: FDA-Public Use
  Company Number: US-ROCHE-3517970

PATIENT
  Age: 55 Year
  Sex: Female

DRUGS (4)
  1. OCREVUS [Suspect]
     Active Substance: OCRELIZUMAB
     Indication: Relapsing-remitting multiple sclerosis
     Route: 042
     Dates: start: 20240227
  2. BENADRYL [Concomitant]
     Active Substance: DIPHENHYDRAMINE HYDROCHLORIDE
     Route: 042
  3. ADVIL [Concomitant]
     Active Substance: IBUPROFEN
  4. AZITHROMYCIN [Concomitant]
     Active Substance: AZITHROMYCIN

REACTIONS (6)
  - Flushing [Not Recovered/Not Resolved]
  - Disorientation [Unknown]
  - Nausea [Unknown]
  - Feeling abnormal [Unknown]
  - Agitation [Unknown]
  - Clumsiness [Unknown]

NARRATIVE: CASE EVENT DATE: 20240228
